FAERS Safety Report 24380998 (Version 1)
Quarter: 2024Q3

REPORT INFORMATION
  Report Type: Report from Study
  Country: US (occurrence: US)
  Receive Date: 20240930
  Receipt Date: 20240930
  Transmission Date: 20241017
  Serious: Yes (Hospitalization, Other)
  Sender: AIMMUNE
  Company Number: US-ZENPEP LLC-2024AIMT01369

PATIENT

DRUGS (2)
  1. ZENPEP [Suspect]
     Active Substance: PANCRELIPASE AMYLASE\PANCRELIPASE LIPASE\PANCRELIPASE PROTEASE
     Indication: Pancreatic failure
     Dosage: DR 10,000 UNIT CAPSULE
     Route: 048
  2. ZENPEP [Suspect]
     Active Substance: PANCRELIPASE AMYLASE\PANCRELIPASE LIPASE\PANCRELIPASE PROTEASE
     Dosage: DR 10,000 UNIT CAPSULE, ONCE, LAST DOSE PRIOR TO EVENT
     Route: 048

REACTIONS (4)
  - Intestinal obstruction [Unknown]
  - Treatment noncompliance [Unknown]
  - Diarrhoea [Unknown]
  - Abdominal pain upper [Unknown]
